FAERS Safety Report 9442698 (Version 1)
Quarter: 2013Q3

REPORT INFORMATION
  Report Type: Spontaneous
  Country: US (occurrence: US)
  Receive Date: 20130806
  Receipt Date: 20130806
  Transmission Date: 20140515
  Serious: Yes (Other)
  Sender: FDA-Public Use
  Company Number: PHHY2013US081132

PATIENT
  Age: 19 Year
  Sex: Male

DRUGS (1)
  1. METHADONE [Suspect]
     Indication: ABDOMINAL PAIN
     Dosage: 100 MG, UNK

REACTIONS (13)
  - Leukoencephalopathy [Recovered/Resolved]
  - Pulse absent [Recovered/Resolved]
  - Muscle spasticity [Recovered/Resolved]
  - Hyperreflexia [Recovered/Resolved]
  - Extensor plantar response [Recovered/Resolved]
  - Myoclonus [Recovered/Resolved]
  - Executive dysfunction [Recovered/Resolved]
  - Memory impairment [Recovered/Resolved]
  - Confusional state [Recovered/Resolved]
  - Hypopnoea [Recovered/Resolved]
  - Coma [Recovered/Resolved]
  - Unresponsive to stimuli [Recovered/Resolved]
  - Overdose [Unknown]
